FAERS Safety Report 8789478 (Version 1)
Quarter: 2012Q4

REPORT INFORMATION
  Report Type: Spontaneous
  Country: US (occurrence: None)
  Receive Date: 20120910
  Receipt Date: 20120910
  Transmission Date: 20130627
  Serious: Yes (Life-Threatening, Hospitalization)
  Sender: FDA-Public Use
  Company Number: None

PATIENT
  Age: 34 Year
  Sex: Female
  Weight: 55.34 kg

DRUGS (3)
  1. FLUOXETINE [Suspect]
     Dosage: 40mg 1x/day po
     Dates: start: 19990319, end: 20120907
  2. CLOZARIL [Suspect]
     Dosage: 50 mg noon; po
     Route: 048
     Dates: start: 19970416, end: 20120907
  3. CLOZARIL [Suspect]
     Dosage: 200mg HS po

REACTIONS (3)
  - Gastrointestinal haemorrhage [None]
  - Colitis ischaemic [None]
  - Ileus [None]
